FAERS Safety Report 8446819-1 (Version None)
Quarter: 2012Q2

REPORT INFORMATION
  Report Type: 
  Country: None (occurrence: None)
  Receive Date: 20120619
  Receipt Date: 20120609
  Transmission Date: 20120825
  Serious: Yes (Other)
  Sender: FDA-Public Use
  Company Number: IN-PAR PHARMACEUTICAL, INC-2012SCPR004446

PATIENT

DRUGS (6)
  1. CLOZAPINE [Interacting]
     Indication: SCHIZOPHRENIA, PARANOID TYPE
     Dosage: 25 MG, / DAY
     Route: 065
  2. RISPERIDONE [Interacting]
     Dosage: 4 MG, / DAY
     Route: 065
  3. RISPERIDONE [Suspect]
     Indication: PSYCHOTIC DISORDER
     Dosage: 4 MG, / DAY
     Route: 065
  4. CLOZAPINE [Interacting]
     Dosage: 400 MG, / DAY
     Route: 065
  5. VALPROATE SODIUM [Interacting]
     Indication: ELECTROENCEPHALOGRAM ABNORMAL
     Dosage: 1000 MG, / DAY
     Route: 065
  6. CLOZAPINE [Interacting]
     Dosage: 200 MG, / DAY
     Route: 065

REACTIONS (2)
  - ASTERIXIS [None]
  - DRUG INTERACTION [None]
